FAERS Safety Report 5805309-2 (Version None)
Quarter: 2008Q3

REPORT INFORMATION
  Report Type: 
  Country: None (occurrence: None)
  Receive Date: 20080708
  Receipt Date: 20080627
  Transmission Date: 20090109
  Serious: Yes (Other)
  Sender: FDA-Public Use
  Company Number: 163-C5013-06050766

PATIENT
  Age: 63 Year
  Sex: Female
  Weight: 58 kg

DRUGS (5)
  1. CC-5013 (LENALIDOMIDE) (CAPSULES) [Suspect]
     Indication: POLYCYTHAEMIA VERA
     Dosage: 10 MG, QD ON DAYS 1-28, ON CYCLES 1-6, ORAL
     Route: 048
     Dates: start: 20060406, end: 20060503
  2. PREDNISONE TAB [Suspect]
     Indication: POLYCYTHAEMIA VERA
     Dosage: 30 MG, QD ON DAYS 1-28, ON CYCLE 1 ONLY, ORAL; 15 MG, QD ON DAYS 1-28, ON CYCLE 2 ONLY, ORAL; 15 MG,
     Route: 048
     Dates: start: 20060406, end: 20060501
  3. PREDNISONE TAB [Suspect]
     Indication: POLYCYTHAEMIA VERA
     Dosage: 30 MG, QD ON DAYS 1-28, ON CYCLE 1 ONLY, ORAL; 15 MG, QD ON DAYS 1-28, ON CYCLE 2 ONLY, ORAL; 15 MG,
     Route: 048
     Dates: start: 20060501, end: 20060601
  4. PREDNISONE TAB [Suspect]
     Indication: POLYCYTHAEMIA VERA
     Dosage: 30 MG, QD ON DAYS 1-28, ON CYCLE 1 ONLY, ORAL; 15 MG, QD ON DAYS 1-28, ON CYCLE 2 ONLY, ORAL; 15 MG,
     Route: 048
     Dates: start: 20060601
  5. HYDREA [Concomitant]

REACTIONS (14)
  - CARDIAC MURMUR [None]
  - CARDIOMEGALY [None]
  - DYSPNOEA [None]
  - FATIGUE [None]
  - NAUSEA [None]
  - OEDEMA PERIPHERAL [None]
  - PERICARDIAL EFFUSION [None]
  - PITTING OEDEMA [None]
  - PLATELET COUNT INCREASED [None]
  - PLEURAL EFFUSION [None]
  - PULMONARY HYPERTENSION [None]
  - PULMONARY OEDEMA [None]
  - RED BLOOD CELL COUNT DECREASED [None]
  - TRICUSPID VALVE INCOMPETENCE [None]
